FAERS Safety Report 12521174 (Version 6)
Quarter: 2019Q4

REPORT INFORMATION
  Report Type: Report from Study
  Country: JP (occurrence: JP)
  Receive Date: 20160701
  Receipt Date: 20191114
  Transmission Date: 20200122
  Serious: Yes (Hospitalization, Disabling, Other)
  Sender: FDA-Public Use
  Company Number: JP-ASTELLAS-2009JP000299

PATIENT
  Age: 18 Year
  Sex: Female
  Weight: 49 kg

DRUGS (72)
  1. PREDNISOLONE. [Suspect]
     Active Substance: PREDNISOLONE
     Route: 048
     Dates: start: 20080107, end: 20080501
  2. PREDNISOLONE. [Suspect]
     Active Substance: PREDNISOLONE
     Route: 048
     Dates: start: 20080502, end: 20080911
  3. PREDNISOLONE. [Suspect]
     Active Substance: PREDNISOLONE
     Route: 048
     Dates: start: 20120630, end: 20121019
  4. NORVASC [Concomitant]
     Active Substance: AMLODIPINE BESYLATE
     Indication: BLOOD PRESSURE INCREASED
     Route: 048
     Dates: start: 20100319, end: 20100415
  5. ACECOL [Concomitant]
     Active Substance: TEMOCAPRIL HYDROCHLORIDE
     Indication: PROTEIN URINE PRESENT
     Route: 048
     Dates: start: 20100608, end: 20100805
  6. EDIROL [Concomitant]
     Active Substance: ELDECALCITOL
     Dosage: 0.5 ?G, ONCE DAILY
     Route: 048
     Dates: start: 20150320
  7. IRBETAN [Concomitant]
     Active Substance: IRBESARTAN
     Indication: PROPHYLAXIS
     Route: 048
     Dates: start: 20140411, end: 20140605
  8. NEXIUM [Concomitant]
     Active Substance: ESOMEPRAZOLE MAGNESIUM
     Indication: PRODUCT USED FOR UNKNOWN INDICATION
     Dosage: 10 MG/DAY, UNKNOWN FREQ.
     Route: 048
     Dates: start: 20150206, end: 20160226
  9. LIPITOR [Concomitant]
     Active Substance: ATORVASTATIN CALCIUM
     Route: 048
     Dates: start: 20140411, end: 20150319
  10. ZYLORIC [Concomitant]
     Active Substance: ALLOPURINOL
     Route: 048
     Dates: start: 20070525, end: 20080430
  11. ZYLORIC [Concomitant]
     Active Substance: ALLOPURINOL
     Route: 048
     Dates: start: 20080501, end: 20140410
  12. LONGES [Concomitant]
     Active Substance: LISINOPRIL
     Indication: PRODUCT USED FOR UNKNOWN INDICATION
     Route: 048
  13. TACROLIMUS. [Interacting]
     Active Substance: TACROLIMUS
     Route: 048
     Dates: start: 20070517, end: 20080203
  14. TACROLIMUS. [Interacting]
     Active Substance: TACROLIMUS
     Route: 048
     Dates: start: 20130412, end: 20150319
  15. PREDNISOLONE. [Suspect]
     Active Substance: PREDNISOLONE
     Route: 048
     Dates: start: 20070615, end: 20070913
  16. PREDNISOLONE. [Suspect]
     Active Substance: PREDNISOLONE
     Route: 048
     Dates: start: 20071119, end: 20080106
  17. MICARDIS [Suspect]
     Active Substance: TELMISARTAN
     Indication: PROPHYLAXIS
  18. BENET [Concomitant]
     Active Substance: RISEDRONATE SODIUM
     Indication: OSTEOPOROSIS
     Route: 048
     Dates: start: 20070810, end: 20160114
  19. IRBETAN [Concomitant]
     Active Substance: IRBESARTAN
     Route: 048
     Dates: start: 20150109, end: 20160407
  20. FEBURIC [Concomitant]
     Active Substance: FEBUXOSTAT
     Indication: PRODUCT USED FOR UNKNOWN INDICATION
     Route: 048
     Dates: start: 20140411, end: 20140515
  21. AMLODIPINE                         /00972402/ [Concomitant]
     Active Substance: AMLODIPINE BESYLATE
     Indication: BLOOD PRESSURE INCREASED
     Route: 048
     Dates: start: 20140606, end: 20151016
  22. LIPITOR [Concomitant]
     Active Substance: ATORVASTATIN CALCIUM
     Indication: HYPERLIPIDAEMIA
     Route: 048
     Dates: start: 2007, end: 20140410
  23. PREDNISOLONE. [Suspect]
     Active Substance: PREDNISOLONE
     Indication: LUPUS NEPHRITIS
     Route: 048
  24. PREDNISOLONE. [Suspect]
     Active Substance: PREDNISOLONE
     Route: 048
     Dates: start: 20100205, end: 20100415
  25. PREDNISOLONE. [Suspect]
     Active Substance: PREDNISOLONE
     Route: 048
     Dates: start: 20100416, end: 20100805
  26. PREDNISOLONE. [Suspect]
     Active Substance: PREDNISOLONE
     Route: 048
     Dates: start: 20121215, end: 20150108
  27. ACECOL [Concomitant]
     Active Substance: TEMOCAPRIL HYDROCHLORIDE
     Route: 048
     Dates: start: 20100806, end: 20140410
  28. BREDININ [Concomitant]
     Active Substance: MIZORIBINE
     Indication: PROTEIN URINE PRESENT
  29. MEDROL [Concomitant]
     Active Substance: METHYLPREDNISOLONE
     Route: 048
     Dates: start: 20100903, end: 20100930
  30. MEDROL [Concomitant]
     Active Substance: METHYLPREDNISOLONE
     Route: 048
     Dates: start: 20101203, end: 20110106
  31. MEDROL [Concomitant]
     Active Substance: METHYLPREDNISOLONE
     Route: 048
     Dates: start: 20110107, end: 20110217
  32. IRBETAN [Concomitant]
     Active Substance: IRBESARTAN
     Indication: PRODUCT USED FOR UNKNOWN INDICATION
     Route: 048
     Dates: start: 20140606, end: 20150108
  33. LIPITOR [Concomitant]
     Active Substance: ATORVASTATIN CALCIUM
     Route: 048
     Dates: start: 20150320, end: 20151016
  34. LONGES [Concomitant]
     Active Substance: LISINOPRIL
     Route: 048
     Dates: start: 20080501, end: 20100607
  35. FUNGIZONE [Concomitant]
     Active Substance: AMPHOTERICIN B
     Indication: PRODUCT USED FOR UNKNOWN INDICATION
     Route: 048
  36. PREDNISOLONE. [Suspect]
     Active Substance: PREDNISOLONE
     Route: 048
     Dates: start: 20110729, end: 20120629
  37. PREDNISOLONE. [Suspect]
     Active Substance: PREDNISOLONE
     Route: 048
     Dates: start: 20121020, end: 20121214
  38. PREDNISOLONE. [Suspect]
     Active Substance: PREDNISOLONE
     Route: 048
     Dates: start: 20150206, end: 20151015
  39. MEDROL [Concomitant]
     Active Substance: METHYLPREDNISOLONE
     Route: 048
     Dates: start: 20101105, end: 20101202
  40. TACROLIMUS. [Interacting]
     Active Substance: TACROLIMUS
     Route: 048
     Dates: start: 20080204, end: 20100722
  41. TACROLIMUS. [Interacting]
     Active Substance: TACROLIMUS
     Route: 048
     Dates: start: 20100723, end: 20130207
  42. PREDNISOLONE. [Suspect]
     Active Substance: PREDNISOLONE
     Route: 048
     Dates: start: 20071022, end: 20071118
  43. PREDNISOLONE. [Suspect]
     Active Substance: PREDNISOLONE
     Route: 048
     Dates: start: 20081128, end: 20100204
  44. PREDNISOLONE. [Suspect]
     Active Substance: PREDNISOLONE
     Route: 048
     Dates: start: 20110218, end: 20110324
  45. PREDNISOLONE. [Suspect]
     Active Substance: PREDNISOLONE
     Route: 048
     Dates: start: 20110422, end: 20110728
  46. PREDNISOLONE. [Suspect]
     Active Substance: PREDNISOLONE
     Dosage: 5 MG/DAY, UNKNOWN FREQ.
     Route: 048
     Dates: start: 20151204
  47. NORVASC [Concomitant]
     Active Substance: AMLODIPINE BESYLATE
     Route: 048
     Dates: start: 20100416, end: 20100720
  48. NOVOLIN R [Concomitant]
     Active Substance: INSULIN HUMAN
     Indication: BLOOD GLUCOSE INCREASED
     Route: 065
     Dates: start: 20100630, end: 20111124
  49. MEDROL [Concomitant]
     Active Substance: METHYLPREDNISOLONE
     Route: 048
     Dates: start: 20101001, end: 20101104
  50. FEBURIC [Concomitant]
     Active Substance: FEBUXOSTAT
     Route: 048
     Dates: start: 20140516
  51. CONIEL [Concomitant]
     Active Substance: BENIDIPINE HYDROCHLORIDE
     Indication: PRODUCT USED FOR UNKNOWN INDICATION
     Dosage: 8 MG/DAY, UNKNOWN FREQ.
     Route: 048
     Dates: start: 20151017
  52. TACROLIMUS. [Interacting]
     Active Substance: TACROLIMUS
     Route: 048
     Dates: start: 20070512, end: 20070516
  53. TACROLIMUS. [Interacting]
     Active Substance: TACROLIMUS
     Route: 048
     Dates: start: 20130208, end: 20130411
  54. PREDNISOLONE. [Suspect]
     Active Substance: PREDNISOLONE
     Route: 048
     Dates: start: 20110325, end: 20110421
  55. OMEPRAL                            /00661201/ [Interacting]
     Active Substance: OMEPRAZOLE
     Indication: MELAENA
     Route: 048
     Dates: start: 20100610, end: 20150205
  56. BREDININ [Concomitant]
     Active Substance: MIZORIBINE
     Indication: LUPUS NEPHRITIS
     Route: 048
     Dates: start: 20100708, end: 20130412
  57. ZYLORIC [Concomitant]
     Active Substance: ALLOPURINOL
     Indication: HYPERURICAEMIA
     Route: 048
  58. MUCOSTA [Concomitant]
     Active Substance: REBAMIPIDE
     Indication: PRODUCT USED FOR UNKNOWN INDICATION
     Route: 048
  59. PERSANTINE [Concomitant]
     Active Substance: DIPYRIDAMOLE
     Indication: PROPHYLAXIS
     Route: 048
  60. TACROLIMUS. [Suspect]
     Active Substance: TACROLIMUS
     Indication: LUPUS NEPHRITIS
     Route: 048
     Dates: start: 20070509, end: 20070511
  61. PREDNISOLONE. [Suspect]
     Active Substance: PREDNISOLONE
     Route: 048
     Dates: start: 20150109, end: 20150205
  62. MICARDIS [Suspect]
     Active Substance: TELMISARTAN
     Indication: PROTEIN URINE PRESENT
     Route: 048
     Dates: start: 20100608, end: 20140410
  63. LOCHOL                             /01224502/ [Concomitant]
     Active Substance: FLUVASTATIN SODIUM
     Indication: PRODUCT USED FOR UNKNOWN INDICATION
     Dosage: 20 MG/DAY, UNKNOWN FREQ.
     Route: 048
     Dates: start: 20151017
  64. TACROLIMUS. [Interacting]
     Active Substance: TACROLIMUS
     Route: 048
     Dates: start: 20150320, end: 20160115
  65. PREDNISOLONE. [Suspect]
     Active Substance: PREDNISOLONE
     Route: 048
     Dates: start: 20070914, end: 20071021
  66. PREDNISOLONE. [Suspect]
     Active Substance: PREDNISOLONE
     Route: 048
     Dates: start: 20080912, end: 20081127
  67. PREDNISOLONE. [Suspect]
     Active Substance: PREDNISOLONE
     Dosage: 4.5 MG/DAY, UNKNOWN FREQ.
     Route: 048
     Dates: start: 20151016, end: 20151203
  68. MEDROL [Concomitant]
     Active Substance: METHYLPREDNISOLONE
     Indication: LUPUS NEPHRITIS
     Route: 048
     Dates: start: 20100806, end: 20100902
  69. FERROMIA                           /00023520/ [Concomitant]
     Indication: IRON DEFICIENCY ANAEMIA
     Route: 048
     Dates: start: 20110422, end: 20110929
  70. EDIROL [Concomitant]
     Active Substance: ELDECALCITOL
     Indication: PRODUCT USED FOR UNKNOWN INDICATION
     Dosage: 0.75 ?G, ONCE DAILY
     Route: 048
     Dates: start: 20131206, end: 20150319
  71. LIPITOR [Concomitant]
     Active Substance: ATORVASTATIN CALCIUM
     Indication: HYPERLIPIDAEMIA
     Route: 048
  72. ONEALFA [Concomitant]
     Active Substance: ALFACALCIDOL
     Indication: PRODUCT USED FOR UNKNOWN INDICATION
     Dosage: 0.5 ?G, ONCE DAILY
     Route: 048

REACTIONS (17)
  - Hyperlipidaemia [Recovering/Resolving]
  - Osteoporosis [Not Recovered/Not Resolved]
  - Melaena [Recovered/Resolved]
  - Blood creatinine increased [Not Recovered/Not Resolved]
  - Drug level increased [Recovered/Resolved]
  - Alanine aminotransferase increased [Recovered/Resolved]
  - Blood pressure increased [Recovered/Resolved]
  - Iron deficiency anaemia [Recovered/Resolved]
  - Drug interaction [Unknown]
  - Gastroenteritis [Recovered/Resolved]
  - Protein urine present [Not Recovered/Not Resolved]
  - Diabetes mellitus [Recovering/Resolving]
  - Prescribed overdose [Unknown]
  - Protein urine present [Recovered/Resolved]
  - Hyperuricaemia [Recovered/Resolved]
  - Protein urine present [Not Recovered/Not Resolved]
  - Blood urine present [Recovering/Resolving]

NARRATIVE: CASE EVENT DATE: 20070514
